FAERS Safety Report 6120969-7 (Version None)
Quarter: 2009Q1

REPORT INFORMATION
  Report Type: 
  Country: None (occurrence: None)
  Receive Date: 20090312
  Receipt Date: 20090226
  Transmission Date: 20090719
  Serious: Yes (Hospitalization)
  Sender: FDA-Public Use
  Company Number: 1000005062

PATIENT
  Age: 37 Year
  Sex: Female

DRUGS (5)
  1. ESCITALOPRAM [Suspect]
     Dosage: 10 MG (10 MG, 1 IN 1 D), ORAL
     Route: 048
     Dates: start: 20090109, end: 20090119
  2. LEPTICUR (TABLETS) [Suspect]
     Dosage: 10 MG (10 MG, 1 IN 1 D), ORAL
     Route: 048
     Dates: start: 20090116, end: 20090119
  3. DEPAKOTE [Suspect]
     Dosage: 100 MG (100 MG, 1 IN 1 D)
     Dates: end: 20090119
  4. LEXOMIL (TABLETS) [Suspect]
     Dosage: 120 MG (120 MG, ONCE), ORAL
     Route: 048
     Dates: start: 20090115, end: 20090115
  5. LOXAPAC [Suspect]
     Dosage: 100 MG (100 MG, ONCE), ORAL
     Route: 048
     Dates: start: 20090115, end: 20090115

REACTIONS (3)
  - EXFOLIATIVE RASH [None]
  - OVERDOSE [None]
  - SUICIDE ATTEMPT [None]
